FAERS Safety Report 9607656 (Version 1)
Quarter: 2013Q4

REPORT INFORMATION
  Report Type: Spontaneous
  Country: US (occurrence: US)
  Receive Date: 20131009
  Receipt Date: 20131009
  Transmission Date: 20140711
  Serious: No
  Sender: FDA-Public Use
  Company Number: US-SANOFI-AVENTIS-2012SA074122

PATIENT
  Age: 62 Year
  Sex: Female

DRUGS (2)
  1. ARAVA [Suspect]
     Indication: RHEUMATOID ARTHRITIS
     Route: 048
     Dates: start: 201206
  2. HUMIRA [Suspect]
     Route: 065
     Dates: start: 2007

REACTIONS (7)
  - Arthralgia [Not Recovered/Not Resolved]
  - Bone pain [Not Recovered/Not Resolved]
  - Eczema [Recovering/Resolving]
  - Hyperkeratosis [Recovering/Resolving]
  - Skin disorder [Recovering/Resolving]
  - Pain of skin [Recovering/Resolving]
  - Pruritus [Recovering/Resolving]
